FAERS Safety Report 6988338-5 (Version None)
Quarter: 2010Q3

REPORT INFORMATION
  Report Type: 
  Country: None (occurrence: None)
  Receive Date: 20100914
  Receipt Date: 20100831
  Transmission Date: 20110219
  Serious: Yes (Other)
  Sender: FDA-Public Use
  Company Number: PK-DEXPHARM-20101363

PATIENT
  Age: 13 Year
  Sex: Female

DRUGS (8)
  1. LOSEC ACTIVE SUBSTANCES: OMEPRAZOLE [Suspect]
     Indication: DYSPEPSIA
     Dosage: DOSE: 20 MG MILLIGRAM(S) SEP. DOSAGES / INTERVAL: 2 IN 1 DAY
  2. LANSOPRAZOLE [Suspect]
  3. MEFENAMIC ACID [Suspect]
     Indication: MIGRAINE
  4. DOMPERIDONE [Suspect]
     Dosage: INTRAVENOUS
     Route: 042
  5. DICLOFENAC INJECTION [Suspect]
     Dosage: INTRAVENOUS
     Route: 042
  6. ACETAMINOPHEN [Concomitant]
  7. RANITIDINE [Concomitant]
  8. SUCRALFATE [Concomitant]

REACTIONS (9)
  - DIZZINESS [None]
  - DRUG INTERACTION [None]
  - DYSPEPSIA [None]
  - GALACTORRHOEA [None]
  - HEADACHE [None]
  - HELICOBACTER INFECTION [None]
  - HYPERPROLACTINAEMIA [None]
  - NAUSEA [None]
  - VOMITING [None]
